FAERS Safety Report 10226719 (Version 2)
Quarter: 2014Q2

REPORT INFORMATION
  Report Type: Report from Study
  Country: GB (occurrence: GB)
  Receive Date: 20140610
  Receipt Date: 20140610
  Transmission Date: 20141212
  Serious: Yes (Hospitalization, Other)
  Sender: FDA-Public Use
  Company Number: GB-AMGEN INC.-GBRCT2011042012

PATIENT
  Sex: 0

DRUGS (3)
  1. ETANERCEPT [Suspect]
     Indication: PRODUCT USED FOR UNKNOWN INDICATION
     Dosage: 50 MG, WEEKLY
     Route: 064
     Dates: start: 20090902, end: 20100513
  2. CICLOSPORIN [Concomitant]
     Dosage: UNK
     Route: 064
     Dates: start: 20110216
  3. ACETAZOLAMIDE [Concomitant]
     Dosage: UNK
     Route: 064
     Dates: start: 200910, end: 20100513

REACTIONS (2)
  - Maternal exposure during pregnancy [Unknown]
  - Premature baby [Unknown]
